FAERS Safety Report 18211011 (Version 3)
Quarter: 2021Q2

REPORT INFORMATION
  Report Type: Spontaneous
  Country: US (occurrence: US)
  Receive Date: 20200830
  Receipt Date: 20210517
  Transmission Date: 20210717
  Serious: No
  Sender: FDA-Public Use
  Company Number: US-SA-2020SA229399

PATIENT
  Age: 11 Year
  Sex: Male

DRUGS (1)
  1. DUPIXENT [Suspect]
     Active Substance: DUPILUMAB
     Indication: DERMATITIS ATOPIC
     Dosage: 200 MG (200 MG/1.14), QOW
     Route: 058
     Dates: start: 20200728

REACTIONS (4)
  - Fatigue [Unknown]
  - Glossodynia [Unknown]
  - Musculoskeletal stiffness [Unknown]
  - Arthralgia [Unknown]
